FAERS Safety Report 9170069 (Version 2)
Quarter: 2013Q2

REPORT INFORMATION
  Report Type: Spontaneous
  Country: JP (occurrence: None)
  Receive Date: 20130311
  Receipt Date: 20130417
  Transmission Date: 20140414
  Serious: Yes (Life-Threatening)
  Sender: FDA-Public Use
  Company Number: SYM-2013-01451

PATIENT
  Age: 79 Year
  Sex: Female
  Weight: 52 kg

DRUGS (5)
  1. FLUOROURACIL [Suspect]
     Indication: COLON CANCER
     Dosage: INTRAVENOUS BOLUS
     Route: 040
     Dates: start: 20120308, end: 20120308
  2. OXALIPLATIN [Suspect]
     Indication: COLON CANCER
     Route: 041
     Dates: start: 20120308, end: 20120308
  3. CALCIUM LEVOFOLINATE (CALCIUM LEVOFOLINATE) (CALCIUM LEVOFOLINATE) [Concomitant]
  4. AVASTIN (BEVACIZUMAB) (BEVACIZUMAB) [Concomitant]
  5. URSO (URSODEOXYCHOLIC ACID) (URSODEOXYCHOLIC ACID) [Concomitant]

REACTIONS (7)
  - Pancytopenia [None]
  - Colon cancer [None]
  - Malignant neoplasm progression [None]
  - Neutrophil count decreased [None]
  - Platelet count decreased [None]
  - Haemoglobin decreased [None]
  - White blood cell count decreased [None]
